FAERS Safety Report 5239713-0 (Version None)
Quarter: 2007Q1

REPORT INFORMATION
  Report Type: 
  Country: None (occurrence: None)
  Receive Date: 20070214
  Receipt Date: 20070214
  Transmission Date: 20070707
  Serious: Yes (Hospitalization)
  Sender: FDA-Public Use
  Company Number: None

PATIENT
  Sex: Male
  Weight: 46.2669 kg

DRUGS (2)
  1. SPIRONOLACTONE [Suspect]
     Indication: HYPERTENSION
     Dosage: 25MG  QD PO
     Route: 048
  2. LASIX [Suspect]
     Indication: HYPERTENSION
     Dosage: 10MG  QD PO
     Route: 048

REACTIONS (2)
  - HYPERGLYCAEMIA [None]
  - RENAL FAILURE ACUTE [None]
